FAERS Safety Report 7032038-2 (Version None)
Quarter: 2010Q4

REPORT INFORMATION
  Report Type: 
  Country: None (occurrence: None)
  Receive Date: 20101007
  Receipt Date: 20100928
  Transmission Date: 20110411
  Serious: Yes (Death)
  Sender: FDA-Public Use
  Company Number: ES-JNJFOC-20100908664

PATIENT
  Age: 82 Year
  Sex: Female

DRUGS (3)
  1. FENTANYL CITRATE [Suspect]
     Indication: DYSPNOEA
     Route: 062
  2. ANTIARRHYTHMIC AGENTS [Concomitant]
     Route: 065
  3. BETA BLOCKING AGENTS [Concomitant]
     Route: 065

REACTIONS (2)
  - DEATH [None]
  - OFF LABEL USE [None]
